FAERS Safety Report 5201882-6 (Version None)
Quarter: 2006Q4

REPORT INFORMATION
  Report Type: 
  Country: None (occurrence: None)
  Receive Date: 20061010
  Receipt Date: 20050815
  Transmission Date: 20070319
  Serious: Yes (Other)
  Sender: FDA-Public Use
  Company Number: 2005-08-1214

PATIENT
  Age: 42 Year
  Sex: Female

DRUGS (2)
  1. TEMODAR [Suspect]
     Indication: METASTATIC MALIGNANT MELANOMA
     Dosage: 150 MG/M^2 ORAL; 1 CYCLE (S)
     Route: 048
  2. DILANTIN [Concomitant]

REACTIONS (1)
  - BONE MARROW FAILURE [None]
